FAERS Safety Report 9172859 (Version 3)
Quarter: 2013Q2

REPORT INFORMATION
  Report Type: Spontaneous
  Country: US (occurrence: US)
  Receive Date: 20130319
  Receipt Date: 20130529
  Transmission Date: 20140414
  Serious: Yes (Other)
  Sender: FDA-Public Use
  Company Number: US-JNJFOC-20130306901

PATIENT
  Age: 79 Year
  Sex: Female

DRUGS (17)
  1. SIMPONI [Suspect]
     Indication: PSORIATIC ARTHROPATHY
     Route: 058
     Dates: start: 201211
  2. SIMPONI [Suspect]
     Indication: PSORIATIC ARTHROPATHY
     Route: 058
     Dates: start: 2012
  3. ALLOPURINOL [Suspect]
     Indication: PRODUCT USED FOR UNKNOWN INDICATION
     Route: 065
     Dates: end: 201302
  4. GELNIQUE [Concomitant]
     Indication: URINARY INCONTINENCE
     Route: 061
  5. ALPRAZOLAM [Concomitant]
     Indication: SLEEP DISORDER THERAPY
     Route: 048
  6. BABY ASPIRIN [Concomitant]
     Route: 048
  7. SINGULAIR [Concomitant]
     Indication: ASTHMA
     Route: 048
  8. SYMBICORT [Concomitant]
     Indication: ASTHMA
     Dosage: 1-2 TIMES DAILY
     Route: 055
  9. COMBIVENT [Concomitant]
     Indication: ASTHMA
     Dosage: 14.7 Q, 2 PUFFS EVERY 4-6 HOURS AS NEEDED
     Route: 055
  10. BENICAR [Concomitant]
     Indication: BLOOD PRESSURE
     Route: 048
  11. ALLEGRA [Concomitant]
     Indication: HYPERSENSITIVITY
     Route: 065
  12. FISH OIL [Concomitant]
     Indication: HYPERSENSITIVITY
     Route: 065
  13. PREMARIN [Concomitant]
     Route: 067
  14. VITAMIN [Concomitant]
     Route: 065
  15. CLINDAMYCIN [Concomitant]
     Route: 048
  16. RESTASIS [Concomitant]
     Indication: DRY EYE
     Dosage: 1 DROP
     Route: 031
  17. SYSTANE [Concomitant]
     Indication: DRY EYE
     Route: 065

REACTIONS (6)
  - Basal cell carcinoma [Not Recovered/Not Resolved]
  - Gout [Not Recovered/Not Resolved]
  - Bronchitis [Recovered/Resolved]
  - Pain in extremity [Recovered/Resolved]
  - Drug dose omission [Not Recovered/Not Resolved]
  - Device malfunction [Unknown]
